FAERS Safety Report 7081187-1 (Version None)
Quarter: 2010Q4

REPORT INFORMATION
  Report Type: 
  Country: None (occurrence: None)
  Receive Date: 20101103
  Receipt Date: 20101026
  Transmission Date: 20110411
  Serious: Yes (Death)
  Sender: FDA-Public Use
  Company Number: TW-BAYER-201043426GPV

PATIENT
  Age: 82 Year
  Sex: Male

DRUGS (4)
  1. CIPROFLOXACIN [Suspect]
     Indication: INFECTION
     Dosage: UNIT DOSE: 100 MG
     Route: 041
     Dates: start: 20100717, end: 20100719
  2. CEFTAZIDIME [Suspect]
     Indication: INFECTION
     Dosage: UNIT DOSE: 500 MG
     Route: 041
     Dates: start: 20100621, end: 20100705
  3. DOMPERIDONE [Concomitant]
     Indication: CONSTIPATION
     Dosage: UNIT DOSE: 10 MG
     Route: 048
     Dates: start: 20100526, end: 20100705
  4. CILOSTAZOL [Concomitant]
     Indication: PERIPHERAL ARTERIAL OCCLUSIVE DISEASE
     Dosage: UNIT DOSE: 50 MG
     Route: 048
     Dates: start: 20100527, end: 20100705

REACTIONS (1)
  - ACUTE GENERALISED EXANTHEMATOUS PUSTULOSIS [None]
